FAERS Safety Report 7237508-X (Version None)
Quarter: 2011Q1

REPORT INFORMATION
  Report Type: 
  Country: None (occurrence: None)
  Receive Date: 20110121
  Receipt Date: 20110119
  Transmission Date: 20110831
  Serious: Yes (Death, Life-Threatening, Hospitalization)
  Sender: FDA-Public Use
  Company Number: PL-PFIZER INC-2006072304

PATIENT
  Age: 47 Year
  Sex: Male
  Weight: 60 kg

DRUGS (3)
  1. KETONAL [Concomitant]
     Route: 048
     Dates: start: 20060301
  2. DURAGESIC-100 [Concomitant]
     Route: 062
     Dates: start: 20060301
  3. SUNITINIB MALATE [Suspect]
     Indication: METASTATIC RENAL CELL CARCINOMA
     Dosage: 50 MG, 1X/DAY
     Route: 048
     Dates: start: 20060523, end: 20060603

REACTIONS (2)
  - RENAL FAILURE [None]
  - MUCOSAL INFLAMMATION [None]
